FAERS Safety Report 21928087 (Version 3)
Quarter: 2024Q3

REPORT INFORMATION
  Report Type: Report from Study
  Country: CA (occurrence: CA)
  Receive Date: 20230130
  Receipt Date: 20240928
  Transmission Date: 20241017
  Serious: Yes (Hospitalization, Other)
  Sender: ROCHE
  Company Number: CA-ROCHE-3271292

PATIENT
  Age: 89 Year
  Sex: Male

DRUGS (1)
  1. VABYSMO [Suspect]
     Active Substance: FARICIMAB-SVOA
     Indication: Neovascular age-related macular degeneration
     Dosage: 6 MG/0.05 ML ;ONGOING: YES
     Route: 050
     Dates: start: 20221116

REACTIONS (3)
  - Visual acuity reduced [Unknown]
  - Dementia [Unknown]
  - Prostatic disorder [Unknown]
